FAERS Safety Report 18543362 (Version 1)
Quarter: 2020Q4

REPORT INFORMATION
  Report Type: Spontaneous
  Country: HK (occurrence: HK)
  Receive Date: 20201124
  Receipt Date: 20201124
  Transmission Date: 20210114
  Serious: Yes (Death, Other)
  Sender: FDA-Public Use
  Company Number: HK-GILEAD-2020-0505833

PATIENT
  Age: 63 Year
  Sex: Male

DRUGS (5)
  1. DEXAMETHASONE. [Concomitant]
     Active Substance: DEXAMETHASONE
  2. OXYGEN. [Concomitant]
     Active Substance: OXYGEN
  3. LOPINAVIR [Concomitant]
     Active Substance: LOPINAVIR
  4. REMDESIVIR. [Suspect]
     Active Substance: REMDESIVIR
     Indication: PRODUCT USED FOR UNKNOWN INDICATION
     Route: 065
  5. INTERFERON [Concomitant]
     Active Substance: INTERFERON

REACTIONS (1)
  - Death [Fatal]
